FAERS Safety Report 12520848 (Version 1)
Quarter: 2016Q2

REPORT INFORMATION
  Report Type: Spontaneous
  Country: US (occurrence: None)
  Receive Date: 20160630
  Receipt Date: 20160630
  Transmission Date: 20160815
  Serious: Yes (Disabling)
  Sender: FDA-Public Use
  Company Number: None

PATIENT
  Age: 54 Year
  Sex: Male
  Weight: 86.18 kg

DRUGS (9)
  1. DIOVAN HTZ [Concomitant]
  2. TEMAZEPAM. [Concomitant]
     Active Substance: TEMAZEPAM
  3. LEVAQUIN [Suspect]
     Active Substance: LEVOFLOXACIN
     Indication: COUGH
     Route: 048
     Dates: start: 20160121, end: 20160126
  4. L-GLUTAMINE /00503401/ [Concomitant]
     Active Substance: GLUTAMINE
  5. SENIOR MULTI VIT [Concomitant]
  6. FLEXERIL [Concomitant]
     Active Substance: CYCLOBENZAPRINE HYDROCHLORIDE
  7. FISH OIL [Concomitant]
     Active Substance: FISH OIL
  8. PROBIOTIC MULTI-ENZYME DIGESTIVE FORMULA [Concomitant]
  9. MAGNESIUM [Concomitant]
     Active Substance: MAGNESIUM

REACTIONS (7)
  - Musculoskeletal pain [None]
  - Pain in extremity [None]
  - Joint swelling [None]
  - Back pain [None]
  - Pain [None]
  - Tendon pain [None]
  - Abasia [None]

NARRATIVE: CASE EVENT DATE: 20160126
